FAERS Safety Report 8014267-4 (Version None)
Quarter: 2011Q4

REPORT INFORMATION
  Report Type: 
  Country: None (occurrence: None)
  Receive Date: 20111229
  Receipt Date: 20111206
  Transmission Date: 20120403
  Serious: Yes (Hospitalization)
  Sender: FDA-Public Use
  Company Number: JP-GLAXOSMITHKLINE-B0768054A

PATIENT
  Age: 73 Year
  Sex: Male

DRUGS (1)
  1. LAMICTAL [Suspect]
     Indication: EPILEPSY
     Dosage: 75MG PER DAY
     Route: 048
     Dates: start: 20110912, end: 20111201

REACTIONS (2)
  - ENANTHEMA [None]
  - RASH [None]
